FAERS Safety Report 4627490-3 (Version None)
Quarter: 2005Q2

REPORT INFORMATION
  Report Type: 
  Country: None (occurrence: None)
  Receive Date: 20050405
  Receipt Date: 20050322
  Transmission Date: 20051028
  Serious: Yes (Death)
  Sender: FDA-Public Use
  Company Number: 2005041884

PATIENT
  Age: 70 Year
  Sex: Female

DRUGS (2)
  1. VORICONAZOLE (VORICONAZOLE) [Suspect]
     Indication: ZYGOMYCOSIS
     Dosage: INTRAVENOUS
     Route: 042
  2. AMPHOTERICIN B [Suspect]
     Indication: ZYGOMYCOSIS
     Dosage: SEE IMAGE
     Route: 042

REACTIONS (5)
  - BLOOD CULTURE POSITIVE [None]
  - CANDIDIASIS [None]
  - IMMUNOSUPPRESSION [None]
  - LOBAR PNEUMONIA [None]
  - SALMONELLOSIS [None]
